FAERS Safety Report 6173847-1 (Version None)
Quarter: 2009Q2

REPORT INFORMATION
  Report Type: 
  Country: None (occurrence: None)
  Receive Date: 20090429
  Receipt Date: 20090429
  Transmission Date: 20091009
  Serious: Yes (Hospitalization, Other)
  Sender: FDA-Public Use
  Company Number: None

PATIENT
  Age: 82 Year
  Sex: Male
  Weight: 68.0396 kg

DRUGS (5)
  1. AMBIEN [Suspect]
     Indication: RESTLESSNESS
     Dosage: 1 PILL 12.5MG ONCE MOUTH
     Route: 048
     Dates: start: 20090207
  2. PLAVIX [Concomitant]
  3. ZOCOR [Concomitant]
  4. COREG [Concomitant]
  5. FLOMAX [Concomitant]

REACTIONS (7)
  - DISSOCIATION [None]
  - FACE INJURY [None]
  - FALL [None]
  - HAEMORRHAGE [None]
  - INJURY [None]
  - JOINT INJURY [None]
  - LIMB INJURY [None]
